FAERS Safety Report 9548640 (Version 3)
Quarter: 2013Q4

REPORT INFORMATION
  Report Type: Spontaneous
  Country: US (occurrence: US)
  Receive Date: 20130924
  Receipt Date: 20131231
  Transmission Date: 20140711
  Serious: No
  Sender: FDA-Public Use
  Company Number: US-PFIZER INC-2013269927

PATIENT
  Age: 50 Year
  Sex: Female

DRUGS (4)
  1. EFFEXOR [Suspect]
     Dosage: UNK
  2. TRAMADOL [Suspect]
     Dosage: UNK
  3. REMERON [Suspect]
     Dosage: UNK
  4. WELLBUTRIN [Suspect]
     Dosage: UNK

REACTIONS (2)
  - Drug hypersensitivity [Unknown]
  - Agitation [Unknown]
